FAERS Safety Report 9144226 (Version 3)
Quarter: 2013Q2

REPORT INFORMATION
  Report Type: Spontaneous
  Country: FR (occurrence: FR)
  Receive Date: 20130306
  Receipt Date: 20130410
  Transmission Date: 20140414
  Serious: Yes (Disabling)
  Sender: FDA-Public Use
  Company Number: FR-ASTRAZENECA-2013SE13758

PATIENT
  Age: 36 Year
  Sex: Male
  Weight: 61 kg

DRUGS (7)
  1. CRESTOR [Suspect]
     Indication: DYSLIPIDAEMIA
     Route: 048
     Dates: start: 201210, end: 20130123
  2. METFORMIN [Concomitant]
     Indication: DIABETES MELLITUS
     Route: 048
  3. LANTUS [Concomitant]
     Indication: DIABETES MELLITUS
     Route: 058
  4. DAONIL [Concomitant]
     Indication: DIABETES MELLITUS
     Route: 048
  5. NOVORAPID [Concomitant]
     Indication: DIABETES MELLITUS
     Route: 058
     Dates: start: 20130121
  6. AMLOR [Concomitant]
     Indication: HYPERTENSION
     Route: 048
  7. MAG2 [Concomitant]
     Route: 048

REACTIONS (3)
  - Paraesthesia [Not Recovered/Not Resolved]
  - Muscle rupture [Unknown]
  - Myalgia [Not Recovered/Not Resolved]
